FAERS Safety Report 23971817 (Version 2)
Quarter: 2024Q2

REPORT INFORMATION
  Report Type: Spontaneous
  Country: US (occurrence: US)
  Receive Date: 20240613
  Receipt Date: 20240613
  Transmission Date: 20240715
  Serious: No
  Sender: FDA-Public Use
  Company Number: US-ELI_LILLY_AND_COMPANY-US202406006420

PATIENT
  Sex: Female

DRUGS (1)
  1. OMVOH [Suspect]
     Active Substance: MIRIKIZUMAB-MRKZ
     Indication: Colitis ulcerative
     Dosage: 100 MG, UNKNOWN
     Route: 058
     Dates: start: 20240607

REACTIONS (4)
  - Underdose [Unknown]
  - Injection site pain [Unknown]
  - Injection site swelling [Unknown]
  - Injection site haemorrhage [Unknown]

NARRATIVE: CASE EVENT DATE: 20240607
